FAERS Safety Report 4446094-9 (Version None)
Quarter: 2004Q3

REPORT INFORMATION
  Report Type: 
  Country: None (occurrence: None)
  Receive Date: 20040903
  Receipt Date: 20040823
  Transmission Date: 20050211
  Serious: Yes (Death)
  Sender: FDA-Public Use
  Company Number: USA-2004-0013444

PATIENT
  Age: 69 Year
  Sex: Male

DRUGS (2)
  1. OXYCONTIN [Suspect]
     Indication: CANCER PAIN
     Dosage: 40 MG
  2. MORPHINE SULFATE [Suspect]

REACTIONS (2)
  - CONDITION AGGRAVATED [None]
  - LUNG CANCER METASTATIC [None]
